FAERS Safety Report 9530337 (Version 1)
Quarter: 2013Q3

REPORT INFORMATION
  Report Type: Spontaneous
  Country: GB (occurrence: GB)
  Receive Date: 20130917
  Receipt Date: 20130917
  Transmission Date: 20140515
  Serious: Yes (Disabling)
  Sender: FDA-Public Use
  Company Number: GB-MYLANLABS-2013S1020042

PATIENT
  Age: 25 Year
  Sex: Male

DRUGS (1)
  1. CITALOPRAM [Suspect]
     Indication: DEPRESSION
     Route: 048
     Dates: start: 20110401, end: 20110414

REACTIONS (2)
  - Loss of libido [Not Recovered/Not Resolved]
  - Sexual dysfunction [Not Recovered/Not Resolved]
